FAERS Safety Report 14762259 (Version 1)
Quarter: 2018Q2

REPORT INFORMATION
  Report Type: Spontaneous
  Country: US (occurrence: US)
  Receive Date: 20180416
  Receipt Date: 20180416
  Transmission Date: 20180711
  Serious: No
  Sender: FDA-Public Use
  Company Number: US-BION-006912

PATIENT
  Age: 37 Year
  Sex: Female

DRUGS (1)
  1. ALEVE [Suspect]
     Active Substance: NAPROXEN SODIUM
     Indication: PAIN
     Dosage: 2 ONE TIME
     Route: 048
     Dates: start: 20180113

REACTIONS (4)
  - Incorrect dose administered [Not Recovered/Not Resolved]
  - Eye swelling [Recovered/Resolved]
  - Throat irritation [Recovered/Resolved]
  - Swelling face [Recovered/Resolved]

NARRATIVE: CASE EVENT DATE: 20180113
